FAERS Safety Report 4354371-5 (Version None)
Quarter: 2004Q2

REPORT INFORMATION
  Report Type: 
  Country: None (occurrence: None)
  Receive Date: 20040503
  Receipt Date: 20040419
  Transmission Date: 20050107
  Serious: Yes (Other)
  Sender: FDA-Public Use
  Company Number: 2004026618

PATIENT
  Age: 13 Year
  Sex: Female
  Weight: 58.9676 kg

DRUGS (2)
  1. DILANTIN [Suspect]
     Indication: GRAND MAL CONVULSION
     Dosage: ORAL
     Route: 048
     Dates: start: 19590101
  2. PRIMIDONE [Concomitant]

REACTIONS (1)
  - CONVULSION [None]
